FAERS Safety Report 18680061 (Version 3)
Quarter: 2021Q1

REPORT INFORMATION
  Report Type: Spontaneous
  Country: SK (occurrence: SK)
  Receive Date: 20201230
  Receipt Date: 20210118
  Transmission Date: 20210419
  Serious: Yes (Death)
  Sender: FDA-Public Use
  Company Number: SK-ROCHE-2737224

PATIENT
  Age: 46 Year
  Sex: Female

DRUGS (5)
  1. OCREVUS [Suspect]
     Active Substance: OCRELIZUMAB
     Indication: RELAPSING-REMITTING MULTIPLE SCLEROSIS
     Dosage: THE INITIAL 600 MG DOSE IS ADMINISTERED AS TWO SEPARATE INTRAVENOUS INFUSIONS; FIRST AS A 300 MG INF
     Route: 042
     Dates: start: 20200723
  2. BACLOFEN. [Concomitant]
     Active Substance: BACLOFEN
  3. ASCORBIC ACID. [Concomitant]
     Active Substance: ASCORBIC ACID
  4. OCREVUS [Suspect]
     Active Substance: OCRELIZUMAB
     Route: 042
  5. DULOXETINE. [Concomitant]
     Active Substance: DULOXETINE

REACTIONS (3)
  - COVID-19 [Fatal]
  - C-reactive protein increased [Recovered/Resolved]
  - Urinary tract infection [Recovered/Resolved]
